FAERS Safety Report 8259468-5 (Version None)
Quarter: 2012Q2

REPORT INFORMATION
  Report Type: 
  Country: None (occurrence: None)
  Receive Date: 20120404
  Receipt Date: 20120329
  Transmission Date: 20120825
  Serious: Yes (Death, Hospitalization)
  Sender: FDA-Public Use
  Company Number: US-ACTELION-A-NJ2012-63047

PATIENT

DRUGS (1)
  1. TRACLEER [Suspect]
     Indication: PULMONARY ARTERIAL HYPERTENSION
     Dosage: UNK
     Route: 048
     Dates: start: 20111101

REACTIONS (9)
  - HYPOXIA [None]
  - MALNUTRITION [None]
  - RIGHT VENTRICULAR FAILURE [None]
  - PULMONARY FIBROSIS [None]
  - DEHYDRATION [None]
  - HYPOALBUMINAEMIA [None]
  - CHRONIC OBSTRUCTIVE PULMONARY DISEASE [None]
  - HYPOTENSION [None]
  - ACUTE RESPIRATORY FAILURE [None]
